FAERS Safety Report 11774381 (Version 1)
Quarter: 2015Q4

REPORT INFORMATION
  Report Type: Spontaneous
  Country: JP (occurrence: JP)
  Receive Date: 20151124
  Receipt Date: 20151124
  Transmission Date: 20160304
  Serious: Yes (Other)
  Sender: FDA-Public Use
  Company Number: JP-PSKUSFDA-2015-JP-0239

PATIENT
  Sex: Male

DRUGS (4)
  1. LUTEINIZING HORMONE-RELEASING HORMONE (GONADORELIN) [Suspect]
     Active Substance: GONADORELIN
     Dosage: UNKNOWN
  2. TOREMIFENE (UNKNOWN) [Suspect]
     Active Substance: TOREMIFENE CITRATE
     Indication: PROSTATE CANCER
  3. ASPIRIN. [Concomitant]
     Active Substance: ASPIRIN
     Indication: ANTICOAGULANT THERAPY
  4. BICALUTAMIDE. [Suspect]
     Active Substance: BICALUTAMIDE
     Indication: PROSTATE CANCER

REACTIONS (2)
  - Headache [None]
  - Product use issue [Unknown]
